FAERS Safety Report 5513858-X (Version None)
Quarter: 2007Q4

REPORT INFORMATION
  Report Type: 
  Country: None (occurrence: None)
  Receive Date: 20071109
  Receipt Date: 20071109
  Transmission Date: 20080405
  Serious: No
  Sender: FDA-Public Use
  Company Number: None

PATIENT
  Age: 27 Year
  Sex: Male

DRUGS (2)
  1. CARBAMAZEPINE [Suspect]
     Indication: NEUROPATHY
     Dosage: 400MG BID PO
     Route: 048
     Dates: start: 20060504, end: 20071105
  2. VARENICLINE [Suspect]
     Indication: TOBACCO ABUSE
     Dosage: 1MG BID PO
     Route: 048
     Dates: start: 20071015

REACTIONS (3)
  - FEELING ABNORMAL [None]
  - MENTAL STATUS CHANGES [None]
  - NERVOUS SYSTEM DISORDER [None]
